FAERS Safety Report 9513979 (Version 6)
Quarter: 2015Q2

REPORT INFORMATION
  Report Type: Spontaneous
  Country: US (occurrence: US)
  Receive Date: 20130910
  Receipt Date: 20150610
  Transmission Date: 20150821
  Serious: Yes (Congenital Anomaly, Other)
  Sender: FDA-Public Use
  Company Number: US-ELI_LILLY_AND_COMPANY-US201309001397

PATIENT

DRUGS (3)
  1. WELLBUTRIN [Concomitant]
     Active Substance: BUPROPION HYDROCHLORIDE
  2. PROZAC [Suspect]
     Active Substance: FLUOXETINE HYDROCHLORIDE
     Indication: DEPRESSION
     Dosage: 10 MG, QD
     Route: 064
  3. PAXIL [Concomitant]
     Active Substance: PAROXETINE HYDROCHLORIDE

REACTIONS (10)
  - Foetal exposure during pregnancy [Recovered/Resolved]
  - Cleft lip and palate [Unknown]
  - Respiratory distress [Unknown]
  - Sepsis [Unknown]
  - Transient tachypnoea of the newborn [Unknown]
  - Otitis media chronic [Unknown]
  - Neonatal aspiration [Unknown]
  - Congenital oral malformation [Unknown]
  - Premature baby [Unknown]
  - Malocclusion [Unknown]
